FAERS Safety Report 19947376 (Version 1)
Quarter: 2021Q4

REPORT INFORMATION
  Report Type: Report from Study
  Country: US (occurrence: US)
  Receive Date: 20211012
  Receipt Date: 20211012
  Transmission Date: 20220303
  Serious: Yes (Other)
  Sender: FDA-Public Use
  Company Number: US-CELGENE-USA-20211001655

PATIENT
  Age: 30 Year
  Sex: Female

DRUGS (13)
  1. LUSPATERCEPT [Suspect]
     Active Substance: LUSPATERCEPT
     Indication: Product used for unknown indication
     Route: 058
     Dates: start: 20170316, end: 20210915
  2. Nitrofuratoin Mono Hcl [Concomitant]
     Indication: Urinary tract infection
     Dosage: 200 MILLIGRAM
     Route: 048
     Dates: start: 20200622, end: 20200628
  3. ONDANSETRON [Concomitant]
     Active Substance: ONDANSETRON
     Indication: Nausea
     Dosage: 8 MILLIGRAM
     Route: 041
     Dates: start: 20210421, end: 20210421
  4. SODIUM CHLORIDE [Concomitant]
     Active Substance: SODIUM CHLORIDE
     Indication: Nausea
     Dosage: 1000 MILLILITER
     Route: 041
     Dates: start: 20210421, end: 20210421
  5. Covid-19 vaccine [Concomitant]
     Indication: Prophylaxis
     Dosage: .5 MILLILITER
     Route: 030
     Dates: start: 20210327, end: 20210327
  6. Covid-19 vaccine [Concomitant]
     Dosage: .5 MILLILITER
     Route: 030
     Dates: start: 20210424, end: 20210424
  7. ACETAMINOPHEN [Concomitant]
     Active Substance: ACETAMINOPHEN
     Indication: Transfusion
     Dosage: 650 MILLIGRAM
     Route: 048
     Dates: start: 20170813
  8. CHOLECALCIFEROL [Concomitant]
     Active Substance: CHOLECALCIFEROL
     Indication: Vitamin D deficiency
     Dosage: 60000 IU (INTERNATIONAL UNIT)
     Route: 048
     Dates: start: 20170619
  9. NEXPLANON [Concomitant]
     Active Substance: ETONOGESTREL
     Indication: Prophylaxis
     Dosage: 68 MILLIGRAM
     Route: 065
     Dates: start: 2015, end: 20210111
  10. DIPHENHYDRAMINE [Concomitant]
     Active Substance: DIPHENHYDRAMINE
     Indication: Transfusion
     Dosage: 50 MILLIGRAM
     Route: 048
     Dates: start: 2003
  11. EPINEPHRINE [Concomitant]
     Active Substance: EPINEPHRINE
     Indication: Anaphylactic reaction
     Dosage: .3 MILLIGRAM
     Route: 030
     Dates: start: 20151023
  12. CETIRIZINE HYDROCHLORIDE [Concomitant]
     Active Substance: CETIRIZINE HYDROCHLORIDE
     Indication: Chronic spontaneous urticaria
     Dosage: 10 MILLIGRAM
     Route: 048
     Dates: start: 20170926
  13. VITAMIN D [Concomitant]
     Active Substance: VITAMIN D NOS
     Indication: Vitamin supplementation
     Dosage: 1000 IU (INTERNATIONAL UNIT)
     Route: 048
     Dates: start: 20171019

REACTIONS (1)
  - Pregnancy [Unknown]

NARRATIVE: CASE EVENT DATE: 20211006
